FAERS Safety Report 11229754 (Version 4)
Quarter: 2015Q4

REPORT INFORMATION
  Report Type: Report from Study
  Country: PL (occurrence: PL)
  Receive Date: 20150630
  Receipt Date: 20151009
  Transmission Date: 20160304
  Serious: Yes (Other)
  Sender: FDA-Public Use
  Company Number: PL-GILEAD-2015-0160470

PATIENT
  Age: 55 Year
  Sex: Male
  Weight: 64.4 kg

DRUGS (21)
  1. ZARZIO [Suspect]
     Active Substance: FILGRASTIM
     Indication: NEUTROPENIA
     Dosage: UNK
     Route: 058
     Dates: start: 20150624, end: 20150630
  2. SYLIMAROL [Concomitant]
     Dosage: UNK
     Dates: start: 201503
  3. MILURIT [Concomitant]
     Active Substance: ALLOPURINOL
     Dosage: UNK
     Dates: start: 20150529
  4. HYDROCORTISON                      /00028601/ [Concomitant]
     Active Substance: HYDROCORTISONE
     Dosage: UNK
     Dates: start: 20150527, end: 20150527
  5. MILURIT [Concomitant]
     Active Substance: ALLOPURINOL
     Dosage: UNK
     Dates: start: 20150424, end: 20150526
  6. VALCYTE [Concomitant]
     Active Substance: VALGANCICLOVIR HYDROCHLORIDE
     Dosage: UNK
     Dates: start: 20150422
  7. ATOSSA                             /00955301/ [Concomitant]
     Dosage: UNK
     Dates: start: 20150527, end: 20150528
  8. NEULASTA [Concomitant]
     Active Substance: PEGFILGRASTIM
     Dosage: UNK
     Dates: start: 20150529, end: 20150529
  9. BENDAMUSTINE [Suspect]
     Active Substance: BENDAMUSTINE
     Indication: NON-HODGKIN^S LYMPHOMA UNSPECIFIED HISTOLOGY INDOLENT
     Dosage: UNK UNK, CYCLICAL
     Route: 042
     Dates: start: 20150203, end: 20150723
  10. RITUXIMAB [Suspect]
     Active Substance: RITUXIMAB
     Indication: NON-HODGKIN^S LYMPHOMA UNSPECIFIED HISTOLOGY INDOLENT
     Dosage: UNK, CYCLICAL
     Route: 042
     Dates: start: 20150203, end: 20150722
  11. OMNIC [Concomitant]
     Active Substance: TAMSULOSIN HYDROCHLORIDE
     Dosage: UNK
     Dates: start: 20150110
  12. SPIRONOL [Concomitant]
     Active Substance: SPIRONOLACTONE
     Dosage: UNK
     Dates: start: 20150319
  13. FRAXIPARINE                        /01437702/ [Concomitant]
     Dosage: UNK
     Dates: start: 20150407
  14. CLATRA [Concomitant]
     Dosage: UNK
     Dates: start: 20150424
  15. G-CSF [Suspect]
     Active Substance: GRANULOCYTE COLONY-STIMULATING FACTOR NOS
     Indication: NEUTROPENIA
     Route: 065
  16. ZEFFIX [Concomitant]
     Active Substance: LAMIVUDINE
     Dosage: UNK
     Dates: start: 20150202
  17. CLEMASTIN [Concomitant]
     Active Substance: CLEMASTINE
     Dosage: UNK
     Dates: start: 20150527, end: 20150527
  18. ACIDUM FOLICUM [Concomitant]
     Active Substance: FOLIC ACID
     Dosage: UNK
     Dates: start: 20150529
  19. IDELALISIB [Suspect]
     Active Substance: IDELALISIB
     Indication: NON-HODGKIN^S LYMPHOMA UNSPECIFIED HISTOLOGY INDOLENT
     Dosage: 100 MG, BID
     Route: 048
     Dates: start: 20150422, end: 20150904
  20. PARACETAMOL [Concomitant]
     Active Substance: ACETAMINOPHEN
     Dosage: UNK
     Dates: start: 20150527, end: 20150527
  21. 0.9 SOLUTION OF NACL [Concomitant]
     Dosage: UNK
     Dates: start: 20150527, end: 20150528

REACTIONS (4)
  - Blood lactate dehydrogenase increased [Recovered/Resolved with Sequelae]
  - Febrile neutropenia [Recovered/Resolved]
  - Toxicity to various agents [None]
  - Cytomegalovirus hepatitis [None]

NARRATIVE: CASE EVENT DATE: 20150624
